FAERS Safety Report 6007955-2 (Version None)
Quarter: 2008Q4

REPORT INFORMATION
  Report Type: 
  Country: None (occurrence: None)
  Receive Date: 20081217
  Receipt Date: 20080618
  Transmission Date: 20090506
  Serious: No
  Sender: FDA-Public Use
  Company Number: US-ASTRAZENECA-2008UW12282

PATIENT
  Age: 49 Year
  Sex: Male
  Weight: 90.7 kg

DRUGS (8)
  1. CRESTOR [Suspect]
     Indication: BLOOD CHOLESTEROL INCREASED
     Route: 048
  2. PLAVIX [Concomitant]
  3. ASPIRIN [Concomitant]
  4. GLUCOSAMINE [Concomitant]
  5. CHONDROITIN [Concomitant]
  6. NIASPAN [Concomitant]
  7. TOPROL-XL [Concomitant]
     Route: 048
  8. BENAZEPRIL HYDROCHLORIDE [Concomitant]

REACTIONS (2)
  - ANAL PRURITUS [None]
  - MOUTH ULCERATION [None]
